FAERS Safety Report 8201032-8 (Version None)
Quarter: 2012Q1

REPORT INFORMATION
  Report Type: 
  Country: None (occurrence: None)
  Receive Date: 20120312
  Receipt Date: 20120307
  Transmission Date: 20120608
  Serious: Yes (Hospitalization)
  Sender: FDA-Public Use
  Company Number: FR-PFIZER INC-2012060460

PATIENT
  Age: 85 Year
  Sex: Female

DRUGS (6)
  1. TEGRETOL [Suspect]
     Dosage: UNK
     Dates: start: 20120105, end: 20120125
  2. PIPERACILLIN AND TAZOBACTAM [Suspect]
     Indication: PNEUMONIA ASPIRATION
     Dosage: UNK
     Dates: start: 20120123, end: 20120201
  3. ATORVASTATIN [Concomitant]
     Dosage: UNK
     Dates: end: 20120117
  4. LEVOFLOXACIN [Concomitant]
     Indication: PNEUMONIA ASPIRATION
     Dosage: UNK
     Dates: start: 20120107, end: 20120116
  5. CIPROFLOXACIN [Suspect]
     Indication: PNEUMONIA ASPIRATION
     Dosage: UNK
     Dates: start: 20120123, end: 20120125
  6. AUGMENTIN '125' [Concomitant]
     Indication: PNEUMONIA ASPIRATION
     Dosage: UNK
     Dates: start: 20120107, end: 20120116

REACTIONS (1)
  - CYTOLYTIC HEPATITIS [None]
